FAERS Safety Report 23326932 (Version 1)
Quarter: 2023Q4

REPORT INFORMATION
  Report Type: Spontaneous
  Country: US (occurrence: None)
  Receive Date: 20231221
  Receipt Date: 20231221
  Transmission Date: 20240110
  Serious: Yes (Death, Hospitalization)
  Sender: FDA-Public Use
  Company Number: None

PATIENT
  Age: 14 Year
  Sex: Female
  Weight: 42.5 kg

DRUGS (4)
  1. CYCLOPHOSPHAMIDE [Suspect]
     Active Substance: CYCLOPHOSPHAMIDE
     Dates: end: 20231024
  2. DACTINOMYCIN [Suspect]
     Active Substance: DACTINOMYCIN
     Dates: end: 20231024
  3. VINCRISTINE SULFATE [Suspect]
     Active Substance: VINCRISTINE SULFATE
     Dates: end: 20231107
  4. VINCRISTINE SULFATE [Suspect]
     Active Substance: VINCRISTINE SULFATE

REACTIONS (8)
  - Febrile neutropenia [None]
  - Pneumocystis jirovecii pneumonia [None]
  - Acute lung injury [None]
  - Acute respiratory distress syndrome [None]
  - Pneumonia cytomegaloviral [None]
  - Lymphopenia [None]
  - Immunosuppression [None]
  - Hepatic infection [None]

NARRATIVE: CASE EVENT DATE: 20231114
